FAERS Safety Report 7736600-0 (Version None)
Quarter: 2011Q3

REPORT INFORMATION
  Report Type: 
  Country: None (occurrence: None)
  Receive Date: 20110902
  Receipt Date: 20110829
  Transmission Date: 20111222
  Serious: Yes (Death)
  Sender: FDA-Public Use
  Company Number: JPI-P-003151

PATIENT
  Age: 49 Year
  Sex: Female

DRUGS (4)
  1. OXYCODONE HCL [Concomitant]
  2. XYREM [Suspect]
     Indication: PRODUCT USED FOR UNKNOWN INDICATION
     Dosage: ORAL
     Route: 048
  3. UNSPECIFIED MEDICATIONS FOR HIGH BLOOD PRESSURE [Concomitant]
  4. UNSPECIFIED MEDICATIONS [Concomitant]

REACTIONS (1)
  - MEMORY IMPAIRMENT [None]
